FAERS Safety Report 5050603-9 (Version None)
Quarter: 2006Q3

REPORT INFORMATION
  Report Type: 
  Country: None (occurrence: None)
  Receive Date: 20060707
  Receipt Date: 20060621
  Transmission Date: 20061208
  Serious: Yes (Hospitalization)
  Sender: FDA-Public Use
  Company Number: 226613

PATIENT
  Age: 59 Year
  Sex: Male
  Weight: 92 kg

DRUGS (7)
  1. AVASTIN [Suspect]
     Indication: COLON CANCER
     Dosage: 460 MG, Q2W, INTRAVENOUS
     Route: 042
     Dates: start: 20051213, end: 20060321
  2. OXALIPLATIN (OXALIPLATIN) [Suspect]
     Indication: COLON CANCER
     Dosage: 178 MG, Q2W, INTRAVENOUS
     Route: 042
     Dates: start: 20051213
  3. FLUOROURACIL [Suspect]
     Indication: COLON CANCER
     Dosage: 840 MG, 2/WEEK/Q2W, INTRAVENOUS; SEE IMAGE
     Route: 042
     Dates: start: 20051213
  4. FLUOROURACIL [Suspect]
     Indication: COLON CANCER
     Dosage: 840 MG, 2/WEEK/Q2W, INTRAVENOUS; SEE IMAGE
     Route: 042
     Dates: start: 20051213
  5. FLUOROURACIL [Suspect]
  6. LEUCOVORIN CALCIUM [Suspect]
     Indication: COLON CANCER
     Dosage: 420 MG, Q2W, INTRAVENOUS
     Route: 042
     Dates: start: 20051213
  7. EPOETIN BETA (EPOETIN BETA) [Concomitant]

REACTIONS (6)
  - BLOOD UREA DECREASED [None]
  - GASTRITIS [None]
  - HAEMATOCRIT DECREASED [None]
  - HAEMOGLOBIN DECREASED [None]
  - OESOPHAGITIS [None]
  - PLATELET COUNT INCREASED [None]
